FAERS Safety Report 7001622-4 (Version None)
Quarter: 2010Q3

REPORT INFORMATION
  Report Type: 
  Country: None (occurrence: None)
  Receive Date: 20100920
  Receipt Date: 20100830
  Transmission Date: 20110219
  Serious: Yes (Hospitalization)
  Sender: FDA-Public Use
  Company Number: PHHY2010FR61524

PATIENT
  Age: 78 Year
  Sex: Male

DRUGS (2)
  1. FRACTAL [Suspect]
     Indication: HYPERCHOLESTEROLAEMIA
     Dosage: 40 MG, QD
     Route: 048
     Dates: start: 20040101
  2. PERMIXON [Concomitant]
     Dosage: UNK

REACTIONS (6)
  - APHASIA [None]
  - CEREBROVASCULAR ACCIDENT [None]
  - CONVULSION [None]
  - HAEMORRHAGIC STROKE [None]
  - HEMIPLEGIA [None]
  - LUNG DISORDER [None]
